FAERS Safety Report 16334485 (Version 1)
Quarter: 2019Q2

REPORT INFORMATION
  Report Type: Spontaneous
  Country: IT (occurrence: US)
  Receive Date: 20190520
  Receipt Date: 20190520
  Transmission Date: 20190711
  Serious: Yes (Life-Threatening, Hospitalization)
  Sender: FDA-Public Use
  Company Number: PHHY2019US114673

PATIENT
  Age: 4 Year
  Sex: Female

DRUGS (1)
  1. DEFERASIROX. [Suspect]
     Active Substance: DEFERASIROX
     Indication: THALASSAEMIA BETA
     Dosage: 36 MG/KG, QD
     Route: 065

REACTIONS (8)
  - Hypophosphataemia [Recovered/Resolved]
  - Glycosuria [Recovered/Resolved]
  - Stupor [Recovered/Resolved]
  - Metabolic acidosis [Recovered/Resolved]
  - Hyperammonaemia [Recovered/Resolved]
  - Vomiting [Recovered/Resolved]
  - Proteinuria [Recovered/Resolved]
  - Product use issue [Unknown]
